FAERS Safety Report 8428539-2 (Version None)
Quarter: 2012Q2

REPORT INFORMATION
  Report Type: 
  Country: None (occurrence: None)
  Receive Date: 20120612
  Receipt Date: 20120607
  Transmission Date: 20120825
  Serious: Yes (Life-Threatening, Hospitalization)
  Sender: FDA-Public Use
  Company Number: IT-BRISTOL-MYERS SQUIBB COMPANY-15915218

PATIENT
  Age: 15 Year
  Sex: Male

DRUGS (7)
  1. ENALAPRIL MALEATE [Concomitant]
  2. OMEPRAZOLE [Concomitant]
  3. LASIX [Concomitant]
  4. DECADRON [Concomitant]
  5. MYCOSTATIN [Concomitant]
  6. SANDIMMUNE [Concomitant]
  7. VEPESID [Suspect]
     Indication: HODGKIN'S DISEASE
     Route: 042
     Dates: start: 20100907, end: 20110622

REACTIONS (1)
  - CONVULSION [None]
